FAERS Safety Report 5807227-2 (Version None)
Quarter: 2008Q3

REPORT INFORMATION
  Report Type: 
  Country: None (occurrence: None)
  Receive Date: 20080711
  Receipt Date: 20080707
  Transmission Date: 20090109
  Serious: Yes (Death)
  Sender: FDA-Public Use
  Company Number: B0528757A

PATIENT
  Age: 3 Month
  Sex: Male

DRUGS (1)
  1. AUGMENTIN '125' [Suspect]
     Route: 048

REACTIONS (2)
  - DEATH [None]
  - PNEUMONIA [None]
